FAERS Safety Report 8947308 (Version 1)
Quarter: 2012Q4

REPORT INFORMATION
  Report Type: 
  Country: US (occurrence: US)
  Receive Date: 20121205
  Receipt Date: 20121205
  Transmission Date: 20130627
  Serious: Yes (Hospitalization)
  Sender: FDA-Public Use
  Company Number: US-B.I. PHARMACEUTICALS,INC./RIDGEFIELD-2012-BI-01643BP

PATIENT
  Sex: Female
  Weight: 78 kg

DRUGS (8)
  1. ZANTAC 150 (RANITIDINE HYDROCHLORIDE) [Suspect]
     Indication: GASTROOESOPHAGEAL REFLUX DISEASE
     Route: 048
     Dates: start: 2012
  2. AMBIEN [Suspect]
     Indication: INSOMNIA
     Dosage: 10 mg
     Route: 048
     Dates: start: 2011
  3. FOLIC ACID [Suspect]
     Indication: PREGNANCY
     Dosage: 1 mg
     Route: 048
     Dates: start: 2012
  4. FOLIC ACID [Suspect]
     Indication: SICKLE CELL ANAEMIA
  5. PERCOCET [Suspect]
     Indication: PAIN
     Route: 048
     Dates: start: 2012
  6. PHENERGAN [Suspect]
     Indication: NAUSEA
     Dosage: 100 mg
     Route: 048
     Dates: start: 2011
  7. XANAX [Suspect]
     Indication: ANXIETY
     Route: 048
     Dates: start: 2011, end: 201206
  8. PRENATAL VITAMIN [Suspect]
     Indication: PREGNANCY
     Route: 048
     Dates: start: 201206

REACTIONS (3)
  - Dehydration [Unknown]
  - Maternal exposure during pregnancy [Unknown]
  - Incorrect drug administration duration [Unknown]
